FAERS Safety Report 10590479 (Version 1)
Quarter: 2014Q4

REPORT INFORMATION
  Report Type: Spontaneous
  Country: DE (occurrence: DE)
  Receive Date: 20141118
  Receipt Date: 20141118
  Transmission Date: 20150529
  Serious: Yes (Hospitalization, Congenital Anomaly, Other)
  Sender: FDA-Public Use
  Company Number: DE-PFIZER INC-2014314846

PATIENT
  Sex: Male
  Weight: 3.31 kg

DRUGS (1)
  1. VENLAFAXINE HCL [Suspect]
     Active Substance: VENLAFAXINE HYDROCHLORIDE
     Indication: DEPRESSION
     Dosage: UNK
     Route: 064

REACTIONS (7)
  - Feeling jittery [Unknown]
  - Seizure [Recovered/Resolved]
  - Maternal exposure during pregnancy [Unknown]
  - Atrial septal defect [Unknown]
  - Hypertonia neonatal [Unknown]
  - Premature baby [Unknown]
  - Agitation [Unknown]

NARRATIVE: CASE EVENT DATE: 2014
